FAERS Safety Report 7247694-3 (Version None)
Quarter: 2011Q1

REPORT INFORMATION
  Report Type: 
  Country: None (occurrence: None)
  Receive Date: 20110127
  Receipt Date: 20110119
  Transmission Date: 20110831
  Serious: No
  Sender: FDA-Public Use
  Company Number: US-JNJFOC-20110106386

PATIENT
  Sex: Female
  Weight: 146.97 kg

DRUGS (3)
  1. FENTANYL-100 [Suspect]
     Indication: PAIN
     Dosage: NDC NUMBER: 0781-7243-55
     Route: 062
  2. FENTANYL [Suspect]
     Indication: PAIN
     Route: 062
  3. MULTIPLE OTHER MEDICATIONS [Concomitant]
     Route: 065

REACTIONS (4)
  - PRODUCT ADHESION ISSUE [None]
  - DERMATITIS CONTACT [None]
  - INCORRECT DRUG ADMINISTRATION DURATION [None]
  - WRONG TECHNIQUE IN DRUG USAGE PROCESS [None]
